FAERS Safety Report 7000747-7 (Version None)
Quarter: 2010Q3

REPORT INFORMATION
  Report Type: 
  Country: None (occurrence: None)
  Receive Date: 20100920
  Receipt Date: 20100112
  Transmission Date: 20110219
  Serious: No
  Sender: FDA-Public Use
  Company Number: US-ASTRAZENECA-2010SE01342

PATIENT
  Sex: Female
  Weight: 72.6 kg

DRUGS (3)
  1. SEROQUEL [Suspect]
     Route: 048
  2. SYMBALTA [Concomitant]
  3. LAMICTAL [Concomitant]

REACTIONS (2)
  - DRUG DOSE OMISSION [None]
  - NIGHTMARE [None]
